FAERS Safety Report 10631902 (Version 1)
Quarter: 2014Q4

REPORT INFORMATION
  Report Type: Spontaneous
  Country: US (occurrence: US)
  Receive Date: 20141205
  Receipt Date: 20141205
  Transmission Date: 20150529
  Serious: No
  Sender: FDA-Public Use
  Company Number: US-BRISTOL-MYERS SQUIBB COMPANY-21291265

PATIENT
  Sex: Female

DRUGS (2)
  1. YERVOY [Suspect]
     Active Substance: IPILIMUMAB
     Indication: MALIGNANT MELANOMA
     Route: 042
  2. LEUKINE [Concomitant]
     Active Substance: SARGRAMOSTIM

REACTIONS (2)
  - Swollen tongue [Unknown]
  - Dysarthria [Unknown]

NARRATIVE: CASE EVENT DATE: 20140807
